FAERS Safety Report 7716906-1 (Version None)
Quarter: 2011Q3

REPORT INFORMATION
  Report Type: 
  Country: None (occurrence: None)
  Receive Date: 20110829
  Receipt Date: 20110815
  Transmission Date: 20111222
  Serious: Yes (Hospitalization, Other)
  Sender: FDA-Public Use
  Company Number: PHHO2010IT08355

PATIENT
  Sex: Male
  Weight: 42 kg

DRUGS (9)
  1. ILARIS [Suspect]
     Dosage: CODE NOT BROKEN
     Dates: start: 20100720
  2. ILARIS [Suspect]
     Dosage: CODE NOT BROKEN
     Dates: start: 20101018
  3. ILARIS [Suspect]
     Dosage: CODE NOT BROKEN
     Dates: start: 20100920
  4. ILARIS [Suspect]
     Dosage: CODE NOT BROKEN
     Dates: start: 20100610
  5. ILARIS [Suspect]
     Dosage: CODE NOT BROKEN
     Dates: start: 20100820
  6. ILARIS [Suspect]
     Dosage: 4 MG/KG
     Route: 058
     Dates: start: 20100126, end: 20100323
  7. ILARIS [Suspect]
     Indication: JUVENILE ARTHRITIS
     Dosage: CODE NOT BROKEN
     Route: 058
     Dates: start: 20100525
  8. ILARIS [Suspect]
     Dosage: CODE NOT BROKEN
     Dates: start: 20101220
  9. ILARIS [Suspect]
     Dosage: CODE NOT BROKEN
     Dates: start: 20101122

REACTIONS (7)
  - ASPARTATE AMINOTRANSFERASE INCREASED [None]
  - HAPTOGLOBIN DECREASED [None]
  - HEADACHE [None]
  - PLATELET COUNT DECREASED [None]
  - ALANINE AMINOTRANSFERASE INCREASED [None]
  - WHITE BLOOD CELL COUNT DECREASED [None]
  - PHARYNGITIS [None]
